FAERS Safety Report 17151066 (Version 1)
Quarter: 2019Q4

REPORT INFORMATION
  Report Type: Spontaneous
  Country: CN (occurrence: CN)
  Receive Date: 20191213
  Receipt Date: 20191213
  Transmission Date: 20200122
  Serious: Yes (Other)
  Sender: FDA-Public Use
  Company Number: CN-ASTELLAS-2019US049127

PATIENT
  Age: 74 Year
  Sex: Male

DRUGS (3)
  1. VESICARE [Suspect]
     Active Substance: SOLIFENACIN SUCCINATE
     Indication: BLADDER SPASM
     Route: 048
     Dates: start: 20191202, end: 20191203
  2. BETMIGA [Suspect]
     Active Substance: MIRABEGRON
     Indication: BLADDER SPASM
     Route: 048
     Dates: start: 20191201, end: 20191203
  3. EPINEPHRINE. [Concomitant]
     Active Substance: EPINEPHRINE
     Indication: BLADDER IRRIGATION
     Route: 050

REACTIONS (3)
  - Hypertensive encephalopathy [Recovering/Resolving]
  - Product use in unapproved indication [Unknown]
  - Hypertensive crisis [Recovering/Resolving]

NARRATIVE: CASE EVENT DATE: 201912
